FAERS Safety Report 5508905-5 (Version None)
Quarter: 2007Q4

REPORT INFORMATION
  Report Type: 
  Country: None (occurrence: None)
  Receive Date: 20071029
  Receipt Date: 20070828
  Transmission Date: 20080405
  Serious: Yes (Other)
  Sender: FDA-Public Use
  Company Number: US-GDP-0715367

PATIENT
  Age: 72 Year
  Sex: Male
  Weight: 91.6266 kg

DRUGS (2)
  1. METROGEL [Suspect]
     Indication: ROSACEA
     Dosage: 1 APP QD TP
     Route: 061
     Dates: end: 20070501
  2. NASALIDE [Concomitant]

REACTIONS (1)
  - PARAESTHESIA [None]
